FAERS Safety Report 24332617 (Version 1)
Quarter: 2024Q3

REPORT INFORMATION
  Report Type: Spontaneous
  Country: GB (occurrence: GB)
  Receive Date: 20240918
  Receipt Date: 20240918
  Transmission Date: 20241017
  Serious: Yes (Other)
  Sender: MYLAN
  Company Number: GB-MYLANLABS-2024M1084637

PATIENT
  Age: 8 Decade
  Sex: Male

DRUGS (12)
  1. SILDENAFIL [Interacting]
     Active Substance: SILDENAFIL
     Indication: Product used for unknown indication
     Dosage: 100 MILLIGRAM
     Route: 065
  2. RIVAROXABAN [Interacting]
     Active Substance: RIVAROXABAN
     Indication: Atrial fibrillation
     Dosage: UNK
     Route: 065
  3. LISINOPRIL [Concomitant]
     Active Substance: LISINOPRIL
     Indication: Hypertension
     Dosage: UNK
     Route: 065
  4. LISINOPRIL [Concomitant]
     Active Substance: LISINOPRIL
     Indication: Chronic kidney disease
  5. TRIAMTERENE [Concomitant]
     Active Substance: TRIAMTERENE
     Indication: Hypertension
     Dosage: UNK
     Route: 065
  6. DAPAGLIFLOZIN [Concomitant]
     Active Substance: DAPAGLIFLOZIN
     Indication: Diabetes mellitus
     Dosage: UNK
     Route: 065
  7. NATEGLINIDE [Concomitant]
     Active Substance: NATEGLINIDE
     Indication: Diabetes mellitus
     Dosage: UNK
     Route: 065
  8. LINAGLIPTIN [Concomitant]
     Active Substance: LINAGLIPTIN
     Indication: Diabetes mellitus
     Dosage: UNK
     Route: 065
  9. GABAPENTIN [Concomitant]
     Active Substance: GABAPENTIN
     Indication: Neuropathy peripheral
     Dosage: UNK
     Route: 065
  10. PANTOPRAZOLE [Concomitant]
     Active Substance: PANTOPRAZOLE
     Indication: Gastrooesophageal reflux disease
     Dosage: UNK
     Route: 065
  11. UPADACITINIB [Concomitant]
     Active Substance: UPADACITINIB
     Indication: Rheumatoid arthritis
     Dosage: UNK
     Route: 065
  12. ATORVASTATIN [Concomitant]
     Active Substance: ATORVASTATIN
     Indication: Hyperlipidaemia
     Dosage: UNK
     Route: 065

REACTIONS (2)
  - Haemoptysis [Recovered/Resolved]
  - Drug interaction [Recovered/Resolved]
